FAERS Safety Report 4497962-3 (Version None)
Quarter: 2004Q4

REPORT INFORMATION
  Report Type: 
  Country: None (occurrence: None)
  Receive Date: 20041105
  Receipt Date: 20041025
  Transmission Date: 20050328
  Serious: Yes (Hospitalization)
  Sender: FDA-Public Use
  Company Number: 2004-BP-10714BP

PATIENT
  Age: 80 Year
  Sex: Female
  Weight: 90.45 kg

DRUGS (19)
  1. AGGRENOX [Suspect]
     Dosage: (BID), PO
     Route: 048
     Dates: start: 20010101
  2. NAMENDA (MEMANTINE HYDROCHLORIDE) [Suspect]
     Indication: DEMENTIA ALZHEIMER'S TYPE
     Dosage: 5-20 MG (10 MG, BID), PO
     Route: 048
     Dates: start: 20040610, end: 20040616
  3. NAMENDA (MEMANTINE HYDROCHLORIDE) [Suspect]
     Indication: DEMENTIA ALZHEIMER'S TYPE
     Dosage: 5-20 MG (10 MG, BID), PO
     Route: 048
     Dates: start: 20040617, end: 20040623
  4. NAMENDA (MEMANTINE HYDROCHLORIDE) [Suspect]
     Indication: DEMENTIA ALZHEIMER'S TYPE
     Dosage: 5-20 MG (10 MG, BID), PO
     Route: 048
     Dates: start: 20040624, end: 20040630
  5. NAMENDA (MEMANTINE HYDROCHLORIDE) [Suspect]
     Indication: DEMENTIA ALZHEIMER'S TYPE
     Dosage: 5-20 MG (10 MG, BID), PO
     Route: 048
     Dates: start: 20040701
  6. LISINOPRIL [Concomitant]
  7. CALCIUM [Concomitant]
  8. POTASSIUM CHLORIDE [Concomitant]
  9. TOLTERODINE (TOLTERODINE) [Concomitant]
  10. NIFEDIPINE [Concomitant]
  11. ZOLOFT [Concomitant]
  12. FUROSEMIDE [Concomitant]
  13. OMEPRAZOLE [Concomitant]
  14. FERROUS SULFATE TAB [Concomitant]
  15. ACETAMINOPHEN [Concomitant]
  16. HYDROCORTISONE [Concomitant]
  17. TUCKS MEDICATED PADS [Concomitant]
  18. DOCUSATE SODIUM (DOCUSATE SODIUM) [Concomitant]
  19. PROMETHAZINE [Concomitant]

REACTIONS (35)
  - ACTIVATED PARTIAL THROMBOPLASTIN TIME PROLONGED [None]
  - ANOREXIA [None]
  - ASTHENIA [None]
  - BALANCE DISORDER [None]
  - BLOOD SODIUM DECREASED [None]
  - CONDITION AGGRAVATED [None]
  - DEEP VEIN THROMBOSIS [None]
  - DEHYDRATION [None]
  - DIVERTICULITIS [None]
  - DIVERTICULUM [None]
  - DIZZINESS [None]
  - FAILURE TO THRIVE [None]
  - FALL [None]
  - GASTROINTESTINAL HAEMORRHAGE [None]
  - GASTROINTESTINAL OEDEMA [None]
  - HYPERTENSION [None]
  - IMPLANT SITE REACTION [None]
  - INTERNATIONAL NORMALISED RATIO INCREASED [None]
  - IRON DEFICIENCY [None]
  - MENTAL STATUS CHANGES [None]
  - MESENTERIC VEIN THROMBOSIS [None]
  - NORMOCHROMIC NORMOCYTIC ANAEMIA [None]
  - OEDEMA PERIPHERAL [None]
  - ORTHOSTATIC HYPOTENSION [None]
  - PEDAL PULSE ABSENT [None]
  - PELVIC VENOUS THROMBOSIS [None]
  - PEPTIC ULCER [None]
  - PITTING OEDEMA [None]
  - PROTHROMBIN TIME PROLONGED [None]
  - RASH [None]
  - THROMBOSIS [None]
  - URINARY INCONTINENCE [None]
  - URINARY TRACT INFECTION [None]
  - VENA CAVA THROMBOSIS [None]
  - VENOUS OCCLUSION [None]
